FAERS Safety Report 18769689 (Version 2)
Quarter: 2021Q2

REPORT INFORMATION
  Report Type: Spontaneous
  Country: US (occurrence: US)
  Receive Date: 20210121
  Receipt Date: 20210510
  Transmission Date: 20210717
  Serious: No
  Sender: FDA-Public Use
  Company Number: US-PFIZER INC-2021041391

PATIENT
  Age: 82 Year
  Sex: Female

DRUGS (1)
  1. IBRANCE [Suspect]
     Active Substance: PALBOCICLIB
     Indication: BREAST CANCER METASTATIC
     Dosage: UNK
     Dates: start: 202012

REACTIONS (5)
  - Rhinorrhoea [Unknown]
  - Eye irritation [Not Recovered/Not Resolved]
  - Onychoclasis [Unknown]
  - Fatigue [Unknown]
  - Alopecia [Not Recovered/Not Resolved]
